FAERS Safety Report 9154996 (Version 2)
Quarter: 2013Q3

REPORT INFORMATION
  Report Type: Spontaneous
  Country: US (occurrence: US)
  Receive Date: 20130311
  Receipt Date: 20130820
  Transmission Date: 20140515
  Serious: Yes (Life-Threatening, Hospitalization)
  Sender: FDA-Public Use
  Company Number: US-BAYER-2013-028338

PATIENT
  Age: 36 Year
  Sex: Female
  Weight: 136.51 kg

DRUGS (18)
  1. YAZ [Suspect]
     Indication: POLYCYSTIC OVARIES
  2. YAZ [Suspect]
     Indication: UTERINE LEIOMYOMA
  3. YASMIN [Suspect]
     Indication: ACNE
  4. OCELLA [Suspect]
     Indication: ACNE
  5. ACETAMINOPHEN [Concomitant]
  6. ROBAXIN [MACROGOL,METHOCARBAMOL] [Concomitant]
     Dosage: 750 MG, UNK
  7. METHYLPREDNISOLON [Concomitant]
  8. BENADRYL [DIPHENHYDRAMINE HYDROCHLORIDE] [Concomitant]
     Dosage: 50 MG, UNK
  9. SILVER SULFADIAZINE [Concomitant]
     Dosage: 1 %, UNK
     Route: 061
     Dates: start: 20110809
  10. HYDROCODONE/ACETAMINOPHEN [Concomitant]
     Dosage: 5-325
     Dates: start: 20110713
  11. ZOFRAN [Concomitant]
     Dosage: 4 MG, UNK
     Dates: start: 20110713
  12. CIPROFLOXACIN [Concomitant]
     Dosage: 500 MG, UNK
     Dates: start: 20110714
  13. FLUCONAZOLE [Concomitant]
     Dosage: 150 MG, UNK
     Dates: start: 20110816
  14. ZOMIG [Concomitant]
     Dosage: 5 MG, UNK
     Dates: start: 20110622
  15. CLONAZEPAM [Concomitant]
     Dosage: 0.5 MG, UNK
     Dates: start: 20110626
  16. LEXAPRO [Concomitant]
  17. TYLENOL [Concomitant]
     Indication: PAIN
  18. VICODIN [Concomitant]
     Indication: PAIN

REACTIONS (5)
  - Pulmonary embolism [None]
  - Deep vein thrombosis [None]
  - Injury [None]
  - Pain [None]
  - Pain [None]
